FAERS Safety Report 8622333 (Version 5)
Quarter: 2012Q4

REPORT INFORMATION
  Report Type: 
  Country: JP (occurrence: JP)
  Receive Date: 20120619
  Receipt Date: 20121008
  Transmission Date: 20130627
  Serious: Yes (Other)
  Sender: FDA-Public Use
  Company Number: PHHY2012JP051308

PATIENT
  Age: 84 Year
  Sex: Male
  Weight: 39 kg

DRUGS (7)
  1. EXELON PATCH [Suspect]
     Indication: DEMENTIA ALZHEIMER^S TYPE
     Dosage: 4.5 mg, QD
     Route: 062
     Dates: start: 20120507
  2. EXELON PATCH [Suspect]
     Dosage: 9 mg, QD
     Route: 062
     Dates: start: 20120604, end: 20120614
  3. LIORESAL [Concomitant]
     Dosage: 5 mg, UNK
     Route: 048
     Dates: start: 20100927
  4. MENESIT [Concomitant]
     Dosage: 200 mg, UNK
     Route: 048
     Dates: start: 20100927
  5. POTASSIUM GLUCONATE [Concomitant]
     Dosage: 1.2 g, UNK
     Route: 048
     Dates: start: 20101016
  6. ALFAROL [Concomitant]
     Dosage: 1 g, UNK
     Dates: start: 20101105
  7. LAC B [Concomitant]
     Dosage: 3 g, UNK
     Route: 048
     Dates: start: 20100927

REACTIONS (7)
  - Infection [Unknown]
  - Pyrexia [Recovered/Resolved]
  - Blood creatinine increased [Unknown]
  - Blood urea increased [Unknown]
  - Application site rash [Recovering/Resolving]
  - Application site erythema [Recovering/Resolving]
  - Application site discolouration [Recovering/Resolving]
